FAERS Safety Report 13463415 (Version 2)
Quarter: 2017Q2

REPORT INFORMATION
  Report Type: Spontaneous
  Country: PT (occurrence: PT)
  Receive Date: 20170420
  Receipt Date: 20170504
  Transmission Date: 20170830
  Serious: No
  Sender: FDA-Public Use
  Company Number: PHHY2017PT054321

PATIENT
  Age: 51 Year
  Sex: Female
  Weight: 55 kg

DRUGS (3)
  1. FLUOMIZIN [Concomitant]
     Active Substance: DEQUALINIUM CHLORIDE
     Indication: BACTERIAL VAGINOSIS
     Dosage: 10 MG, QD
     Route: 048
     Dates: start: 20170117, end: 20170123
  2. AZITROMICINA [Concomitant]
     Active Substance: AZITHROMYCIN DIHYDRATE
     Indication: CHLAMYDIAL INFECTION
     Dosage: 1 DF, UNK
     Route: 048
     Dates: start: 20170226, end: 20170226
  3. AMOXICILLIN SODIUM+POTASSIUM CLAVULANATE SANDOZ [Suspect]
     Active Substance: AMOXICILLIN\CLAVULANATE POTASSIUM
     Indication: URINARY TRACT INFECTION
     Dosage: 1 DF, BID
     Route: 048
     Dates: start: 20170226, end: 20170303

REACTIONS (2)
  - Abdominal distension [Recovered/Resolved]
  - Nausea [Recovered/Resolved]

NARRATIVE: CASE EVENT DATE: 20170227
